FAERS Safety Report 9182283 (Version 1)
Quarter: 2013Q1

REPORT INFORMATION
  Report Type: Spontaneous
  Country: RW (occurrence: RW)
  Receive Date: 20130322
  Receipt Date: 20130322
  Transmission Date: 20140127
  Serious: Yes (Hospitalization)
  Sender: FDA-Public Use
  Company Number: RW-UCBSA-081180

PATIENT
  Age: 3 Year
  Sex: Female
  Weight: 15 kg

DRUGS (2)
  1. KEPPRA [Suspect]
     Dosage: UNKNOWN DOSE
  2. DEPAKINE [Concomitant]
     Indication: EPILEPSY

REACTIONS (1)
  - Convulsion [Recovered/Resolved]
